FAERS Safety Report 6091370-X (Version None)
Quarter: 2009Q1

REPORT INFORMATION
  Report Type: 
  Country: None (occurrence: None)
  Receive Date: 20090225
  Receipt Date: 20081126
  Transmission Date: 20090719
  Serious: No
  Sender: FDA-Public Use
  Company Number: A0748391A

PATIENT
  Age: 52 Year
  Sex: Female

DRUGS (5)
  1. VERAMYST [Suspect]
     Dosage: 4SPR PER DAY
     Route: 045
     Dates: start: 20080601
  2. DIETARY SUPPLEMENT [Concomitant]
  3. LEVOTHYROXINE SODIUM [Concomitant]
  4. PREDNISONE [Concomitant]
  5. ANTIHISTAMINE [Concomitant]

REACTIONS (4)
  - EYELIDS PRURITUS [None]
  - NASAL DISCOMFORT [None]
  - NASAL DRYNESS [None]
  - PRODUCT QUALITY ISSUE [None]
